FAERS Safety Report 16431275 (Version 1)
Quarter: 2019Q2

REPORT INFORMATION
  Report Type: Spontaneous
  Country: US (occurrence: US)
  Receive Date: 20190614
  Receipt Date: 20190614
  Transmission Date: 20190711
  Serious: Yes (Other)
  Sender: FDA-Public Use
  Company Number: US-SCA PHARMACEUTICALS-2019SCA00026

PATIENT

DRUGS (4)
  1. VITAMIN D, CHOLECALCIFEROL [Concomitant]
     Route: 064
  2. MAGNESIUM [Concomitant]
     Active Substance: MAGNESIUM
     Route: 064
  3. PRENATAL VIT-FE FUMARATE-FA [Concomitant]
     Route: 064
  4. FENTANYL AND BUPIVACAINE [Suspect]
     Active Substance: BUPIVACAINE\FENTANYL
     Dosage: UNK
     Route: 064
     Dates: start: 20190507

REACTIONS (1)
  - Foetal heart rate deceleration abnormality [Recovering/Resolving]

NARRATIVE: CASE EVENT DATE: 20190507
